FAERS Safety Report 21447076 (Version 1)
Quarter: 2022Q4

REPORT INFORMATION
  Report Type: Spontaneous
  Country: DK (occurrence: DK)
  Receive Date: 20221012
  Receipt Date: 20221012
  Transmission Date: 20230112
  Serious: Yes (Other)
  Sender: FDA-Public Use
  Company Number: None

PATIENT
  Age: 82 Year
  Sex: Female
  Weight: 86 kg

DRUGS (2)
  1. ZOLEDRONIC ACID [Suspect]
     Active Substance: ZOLEDRONIC ACID
     Indication: Bone disorder
     Dosage: STRENGTH: 4 MG/5 ML
     Route: 042
     Dates: start: 20210430, end: 20210430
  2. ARANESP [Concomitant]
     Active Substance: DARBEPOETIN ALFA
     Indication: Anaemia
     Dates: start: 20210430

REACTIONS (7)
  - Infusion site swelling [Recovered/Resolved]
  - Infusion related reaction [Recovered/Resolved]
  - Administration site wound [Recovering/Resolving]
  - Peripheral swelling [Recovered/Resolved]
  - Infusion site streaking [Recovered/Resolved]
  - Erythema [None]
  - Infusion site necrosis [Recovering/Resolving]

NARRATIVE: CASE EVENT DATE: 20210430
